FAERS Safety Report 17140153 (Version 1)
Quarter: 2019Q4

REPORT INFORMATION
  Report Type: Spontaneous
  Country: US (occurrence: US)
  Receive Date: 20191211
  Receipt Date: 20191211
  Transmission Date: 20200122
  Serious: No
  Sender: FDA-Public Use
  Company Number: US-UCBSA-2016013123

PATIENT
  Sex: Female

DRUGS (3)
  1. KEPPRA XR [Suspect]
     Active Substance: LEVETIRACETAM
     Dosage: 3750 MG, ONCE DAILY (QD)
  2. LAMOTRIGINE. [Suspect]
     Active Substance: LAMOTRIGINE
     Indication: SEIZURE PROPHYLAXIS
     Dosage: 400 MG, ONCE DAILY (QD)
  3. KEPPRA XR [Suspect]
     Active Substance: LEVETIRACETAM
     Indication: SEIZURE PROPHYLAXIS
     Dosage: UNKNOWN DOSE

REACTIONS (7)
  - Off label use [Unknown]
  - Headache [Unknown]
  - Overdose [Unknown]
  - Disturbance in attention [Unknown]
  - Somnolence [Unknown]
  - Fatigue [Unknown]
  - Epilepsy [Unknown]
